FAERS Safety Report 8463827-5 (Version None)
Quarter: 2012Q2

REPORT INFORMATION
  Report Type: 
  Country: None (occurrence: None)
  Receive Date: 20120625
  Receipt Date: 20120612
  Transmission Date: 20120825
  Serious: Yes (Death, Life-Threatening, Hospitalization, Other)
  Sender: FDA-Public Use
  Company Number: US-MYLANLABS-2009AC000495

PATIENT
  Age: 56 Year
  Sex: Male
  Weight: 86.64 kg

DRUGS (44)
  1. IBUPROFEN [Concomitant]
  2. SILVADENE [Concomitant]
  3. CLINDAMYCIN [Concomitant]
  4. TORSEMIDE [Concomitant]
  5. DOXYCYCLINE [Concomitant]
  6. DYAZIDE [Concomitant]
     Dosage: 37.5/25MG
  7. COVERA-HS [Concomitant]
  8. BETAMETHASONE [Concomitant]
  9. DIGOXIN [Suspect]
     Route: 048
     Dates: start: 20060406, end: 20090302
  10. ASPIRIN [Concomitant]
  11. DULCOLAX [Concomitant]
  12. METOPROLOL SUCCINATE [Concomitant]
  13. PRILOSEC [Concomitant]
  14. VIAGRA [Concomitant]
  15. PLAVIX [Concomitant]
  16. FEXOFENADINE [Concomitant]
  17. CEPHALEXIN [Concomitant]
  18. AMIODARONE HCL [Concomitant]
  19. COREG [Concomitant]
  20. KLOR-CON [Concomitant]
  21. METOLAZONE [Concomitant]
     Dosage: 1/2
  22. NIASPAN [Concomitant]
  23. CARAFATE [Concomitant]
  24. NATRECOR [Concomitant]
  25. LORCET-HD [Concomitant]
     Indication: PAIN
     Dosage: EVERY FOUR HOURS
  26. LISINOPRIL [Concomitant]
  27. NEXIUM [Concomitant]
  28. ALTACE [Concomitant]
  29. DECADRON [Concomitant]
     Route: 030
  30. ZANTAC [Concomitant]
  31. DEPO-MEDROL [Concomitant]
     Route: 030
  32. LIPITOR [Concomitant]
  33. PACERONE [Concomitant]
  34. ACUTRIM /00103801/ [Concomitant]
  35. PREDNISONE TAB [Concomitant]
  36. ASPIRIN [Concomitant]
  37. LASIX [Concomitant]
  38. SPIRONOLACTONE [Concomitant]
  39. LOTREL [Concomitant]
     Dosage: 5/10 DAILY
  40. DIPROLENE [Concomitant]
  41. DARVOCET [Concomitant]
  42. PEPCID [Concomitant]
  43. LASIX [Concomitant]
     Route: 042
  44. INFLUENZA VACCINE [Concomitant]

REACTIONS (88)
  - ECONOMIC PROBLEM [None]
  - ILL-DEFINED DISORDER [None]
  - SNORING [None]
  - DEVICE MALFUNCTION [None]
  - ISCHAEMIC CARDIOMYOPATHY [None]
  - DYSPNOEA [None]
  - MYOCARDIAL INFARCTION [None]
  - DISEASE PROGRESSION [None]
  - HYPOTENSION [None]
  - DYSLIPIDAEMIA [None]
  - SKIN ULCER [None]
  - HYPOKALAEMIA [None]
  - ACUTE PRERENAL FAILURE [None]
  - SYNCOPE [None]
  - IMPLANTABLE DEFIBRILLATOR INSERTION [None]
  - NAUSEA [None]
  - WOUND DRAINAGE [None]
  - APPARENT DEATH [None]
  - DIZZINESS [None]
  - LEFT VENTRICULAR END-DIASTOLIC PRESSURE DECREASED [None]
  - LEFT VENTRICULAR DYSFUNCTION [None]
  - CARDIOMEGALY [None]
  - OBESITY [None]
  - CARDIAC MURMUR [None]
  - MUSCULOSKELETAL DISCOMFORT [None]
  - SKIN DISCOLOURATION [None]
  - PAIN [None]
  - VENTRICULAR FIBRILLATION [None]
  - MECHANICAL VENTILATION [None]
  - HYPERCHOLESTEROLAEMIA [None]
  - ESSENTIAL HYPERTENSION [None]
  - PEPTIC ULCER [None]
  - WEIGHT DECREASED [None]
  - CARDIAC MONITORING [None]
  - SEPSIS [None]
  - OEDEMA PERIPHERAL [None]
  - THROMBOCYTOPENIA [None]
  - ANGINA PECTORIS [None]
  - SYSTOLIC DYSFUNCTION [None]
  - GOUT [None]
  - TREATMENT NONCOMPLIANCE [None]
  - WHEEZING [None]
  - SKIN HYPERPIGMENTATION [None]
  - VENTRICULAR TACHYCARDIA [None]
  - HAEMATURIA [None]
  - VOMITING [None]
  - FALL [None]
  - BALANCE DISORDER [None]
  - BLOOD PRESSURE DECREASED [None]
  - ASTHENIA [None]
  - RALES [None]
  - HEART SOUNDS ABNORMAL [None]
  - SKIN LESION [None]
  - INJURY [None]
  - DEATH [None]
  - RENAL FAILURE [None]
  - CARDIOMYOPATHY [None]
  - ATRIAL FIBRILLATION [None]
  - IMPAIRED HEALING [None]
  - DYSPNOEA EXERTIONAL [None]
  - ARTERIOSCLEROSIS CORONARY ARTERY [None]
  - BREATH SOUNDS ABNORMAL [None]
  - OEDEMA GENITAL [None]
  - PANCREATIC ENLARGEMENT [None]
  - EMOTIONAL DISTRESS [None]
  - CARDIAC FAILURE CONGESTIVE [None]
  - HYPONATRAEMIA [None]
  - HYPOCALCAEMIA [None]
  - RENAL FAILURE ACUTE [None]
  - ACUTE RESPIRATORY FAILURE [None]
  - SINUS ARRHYTHMIA [None]
  - PLEURAL EFFUSION [None]
  - PULMONARY CONGESTION [None]
  - GASTROOESOPHAGEAL REFLUX DISEASE [None]
  - BLOOD PRESSURE ABNORMAL [None]
  - BLISTER [None]
  - LUNG INFILTRATION [None]
  - WEIGHT INCREASED [None]
  - COMPUTERISED TOMOGRAM ABNORMAL [None]
  - APNOEA [None]
  - CORONARY ARTERY DISEASE [None]
  - RENAL FAILURE CHRONIC [None]
  - CONTUSION [None]
  - URINE OUTPUT DECREASED [None]
  - SINUS BRADYCARDIA [None]
  - HEART RATE DECREASED [None]
  - ABDOMINAL DISTENSION [None]
  - LOCALISED INFECTION [None]
